FAERS Safety Report 6650060-2 (Version None)
Quarter: 2010Q1

REPORT INFORMATION
  Report Type: 
  Country: None (occurrence: None)
  Receive Date: 20100325
  Receipt Date: 20100315
  Transmission Date: 20100710
  Serious: Yes (Hospitalization)
  Sender: FDA-Public Use
  Company Number: JP-JNJFOC-20091103628

PATIENT
  Sex: Female
  Weight: 54 kg

DRUGS (14)
  1. REMICADE [Suspect]
     Indication: RHEUMATOID ARTHRITIS
     Route: 042
     Dates: start: 20090306, end: 20090821
  2. REMICADE [Suspect]
     Route: 042
     Dates: start: 20090306, end: 20090821
  3. REMICADE [Suspect]
     Route: 042
     Dates: start: 20090306, end: 20090821
  4. REMICADE [Suspect]
     Route: 042
     Dates: start: 20090306, end: 20090821
  5. REMICADE [Suspect]
     Route: 042
     Dates: start: 20090306, end: 20090821
  6. RHEUMATREX [Suspect]
     Indication: RHEUMATOID ARTHRITIS
     Route: 048
  7. AZATHIOPRINE [Concomitant]
     Route: 048
  8. MOHRUS TAPE [Concomitant]
     Indication: RHEUMATOID ARTHRITIS
  9. FOLIC ACID [Concomitant]
     Indication: PROPHYLAXIS
  10. ISCOTIN [Concomitant]
     Indication: PROPHYLAXIS
     Route: 048
  11. PYDOXAL [Concomitant]
     Indication: PROPHYLAXIS
     Route: 048
  12. RELIFEN [Concomitant]
     Indication: RHEUMATOID ARTHRITIS
     Route: 048
  13. MUCOSTA [Concomitant]
     Indication: PROPHYLAXIS
     Route: 048
  14. LIMETHASON [Concomitant]
     Route: 042

REACTIONS (2)
  - PNEUMOCYSTIS JIROVECI PNEUMONIA [None]
  - PYREXIA [None]
